FAERS Safety Report 5636865-5 (Version None)
Quarter: 2008Q1

REPORT INFORMATION
  Report Type: 
  Country: None (occurrence: None)
  Receive Date: 20080225
  Receipt Date: 20080211
  Transmission Date: 20080703
  Serious: Yes (Other)
  Sender: FDA-Public Use
  Company Number: CH-BRACCO-000002

PATIENT
  Sex: Female

DRUGS (6)
  1. IOPAMIRO [Suspect]
     Indication: DIAGNOSTIC PROCEDURE
     Route: 026
     Dates: start: 20071121, end: 20071121
  2. IOPAMIRO [Suspect]
     Indication: RADICULAR PAIN
     Route: 026
     Dates: start: 20071121, end: 20071121
  3. TAVEGYL                            /00137201/ [Concomitant]
     Route: 042
     Dates: start: 20071121
  4. ZANTAC [Concomitant]
     Route: 065
     Dates: start: 20071121
  5. NAROPIN [Concomitant]
     Route: 065
     Dates: start: 20071121, end: 20071121
  6. KENACORT                           /00031901/ [Concomitant]
     Route: 065
     Dates: start: 20071121, end: 20071121

REACTIONS (7)
  - DIARRHOEA HAEMORRHAGIC [None]
  - DIZZINESS [None]
  - ERYTHEMA [None]
  - NAUSEA [None]
  - RASH [None]
  - SWELLING FACE [None]
  - VOMITING [None]
